FAERS Safety Report 9335461 (Version 2)
Quarter: 2013Q2

REPORT INFORMATION
  Report Type: Spontaneous
  Country: GR (occurrence: GR)
  Receive Date: 20130605
  Receipt Date: 20130618
  Transmission Date: 20140414
  Serious: Yes (Other)
  Sender: FDA-Public Use
  Company Number: GR-PFIZER INC-2013170295

PATIENT
  Age: 60 Year
  Sex: Male

DRUGS (3)
  1. ZOLOFT [Suspect]
     Indication: DEPRESSION
     Dosage: 100 MG, 2X/DAY
     Dates: start: 201303
  2. DIAZEPAM [Concomitant]
     Dosage: UNK
  3. LAMICTAL [Concomitant]

REACTIONS (3)
  - Dizziness [Recovered/Resolved]
  - Hypertension [Recovered/Resolved]
  - Libido decreased [Not Recovered/Not Resolved]
